FAERS Safety Report 16562152 (Version 1)
Quarter: 2019Q3

REPORT INFORMATION
  Report Type: Spontaneous
  Country: US (occurrence: US)
  Receive Date: 20190711
  Receipt Date: 20190711
  Transmission Date: 20191004
  Serious: Yes (Hospitalization)
  Sender: FDA-Public Use
  Company Number: US-ACTELION-A-NJ2019-192659

PATIENT
  Age: 88 Year
  Sex: Female

DRUGS (2)
  1. UPTRAVI [Suspect]
     Active Substance: SELEXIPAG
     Indication: PRODUCT USED FOR UNKNOWN INDICATION
     Dosage: 400 MCG
     Route: 048
  2. UPTRAVI [Suspect]
     Active Substance: SELEXIPAG
     Dosage: 200 MCG
     Route: 048

REACTIONS (5)
  - Hypokalaemia [Recovered/Resolved]
  - Blood potassium decreased [Recovered/Resolved]
  - Gastrointestinal viral infection [Unknown]
  - Diarrhoea [Unknown]
  - Nausea [Unknown]
